FAERS Safety Report 9359420 (Version 2)
Quarter: 2013Q2

REPORT INFORMATION
  Report Type: Spontaneous
  Country: US (occurrence: US)
  Receive Date: 20130620
  Receipt Date: 20130625
  Transmission Date: 20140414
  Serious: Yes (Hospitalization)
  Sender: FDA-Public Use
  Company Number: US-PFIZER INC-2013180720

PATIENT
  Age: 15 Year
  Sex: Female

DRUGS (1)
  1. MOTRIN [Suspect]
     Dosage: 20 DF, UNK
     Route: 048
     Dates: start: 20130605, end: 20130605

REACTIONS (4)
  - Intentional overdose [Unknown]
  - Suicide attempt [Recovering/Resolving]
  - Intentional self-injury [Unknown]
  - Laceration [None]
